FAERS Safety Report 25478876 (Version 1)
Quarter: 2025Q2

REPORT INFORMATION
  Report Type: Spontaneous
  Country: US (occurrence: None)
  Receive Date: 20250624
  Receipt Date: 20250624
  Transmission Date: 20250716
  Serious: Yes (Other)
  Sender: FDA-CTU
  Company Number: None

PATIENT
  Age: 50 Year
  Sex: Female
  Weight: 128.25 kg

DRUGS (13)
  1. JOURNAVX [Suspect]
     Active Substance: SUZETRIGINE
     Indication: Back pain
     Dosage: OTHER QUANTITY : 1 TABLET(S);?FREQUENCY : EVERY 12 HOURS;?
     Route: 048
     Dates: start: 20250610, end: 20250612
  2. TRAZODONE [Concomitant]
     Active Substance: TRAZODONE HYDROCHLORIDE
  3. ABILIFY [Concomitant]
     Active Substance: ARIPIPRAZOLE
  4. LEXAPRO [Concomitant]
     Active Substance: ESCITALOPRAM OXALATE
  5. Levythyrozine [Concomitant]
  6. GABAPENTIN [Concomitant]
     Active Substance: GABAPENTIN
  7. FLUVASTATIN [Concomitant]
     Active Substance: FLUVASTATIN SODIUM
  8. KLONOPIN [Concomitant]
     Active Substance: CLONAZEPAM
  9. LINZESS [Concomitant]
     Active Substance: LINACLOTIDE
  10. TRAMADOL [Suspect]
     Active Substance: TRAMADOL
  11. AJOVY [Concomitant]
     Active Substance: FREMANEZUMAB-VFRM
  12. BOTOX [Concomitant]
     Active Substance: ONABOTULINUMTOXINA
  13. TYLENOL [Concomitant]
     Active Substance: ACETAMINOPHEN

REACTIONS (5)
  - Myalgia [None]
  - Arthralgia [None]
  - Blood creatine phosphokinase increased [None]
  - Impaired work ability [None]
  - Therapy cessation [None]

NARRATIVE: CASE EVENT DATE: 20250612
